FAERS Safety Report 7413209-X (Version None)
Quarter: 2011Q2

REPORT INFORMATION
  Report Type: 
  Country: None (occurrence: None)
  Receive Date: 20110413
  Receipt Date: 20110406
  Transmission Date: 20111010
  Serious: Yes (Death, Other)
  Sender: FDA-Public Use
  Company Number: JP-CEPHALON-2011000478

PATIENT
  Sex: Female
  Weight: 36 kg

DRUGS (11)
  1. PANTHENOL [Concomitant]
     Dates: end: 20110124
  2. MORPHINE [Concomitant]
     Dates: end: 20110124
  3. GRANISETRON HYDROCHLORIDE [Concomitant]
     Dates: start: 20110119, end: 20110120
  4. OMEPRAZOLE [Concomitant]
     Dates: end: 20110124
  5. BENDAMUSTINE HCL [Suspect]
     Indication: B-CELL LYMPHOMA
     Route: 042
     Dates: start: 20110119, end: 20110120
  6. PREDNISOLONE SODIUM SUCCINATE INJ [Concomitant]
     Dates: end: 20110124
  7. SODIUM BICARBONATE [Concomitant]
     Dates: start: 20110122, end: 20110123
  8. POTASSIUM CHLORIDE [Concomitant]
     Dates: end: 20110125
  9. BROMHEXINE HYDROCHLORIDE [Concomitant]
     Dates: end: 20110124
  10. CEFEPIME [Concomitant]
     Dates: end: 20110121
  11. INSULIN [Concomitant]
     Dates: end: 20110125

REACTIONS (4)
  - NEUTROPENIA [None]
  - HYPERNATRAEMIA [None]
  - B-CELL LYMPHOMA [None]
  - HYPERCHLORAEMIA [None]
